FAERS Safety Report 23162992 (Version 2)
Quarter: 2023Q4

REPORT INFORMATION
  Report Type: Spontaneous
  Country: HR (occurrence: HR)
  Receive Date: 20231109
  Receipt Date: 20231123
  Transmission Date: 20240110
  Serious: Yes (Hospitalization, Other)
  Sender: FDA-Public Use
  Company Number: HR-ALKALOID-2023HQ23821

PATIENT
  Age: 85 Year
  Sex: Female

DRUGS (5)
  1. MELPHALAN [Suspect]
     Active Substance: MELPHALAN
     Indication: Plasma cell myeloma
     Dosage: AT LEAST THREE CYCLES ACCORDING VMP PROTOCOL FOR MULTIPLE MYELOMA
     Route: 065
  2. PREDNISONE [Suspect]
     Active Substance: PREDNISONE
     Indication: Plasma cell myeloma
     Dosage: AT LEAST THREE CYCLES ACCORDING VMP PROTOCOL FOR MULTIPLE MYELOMA
     Route: 065
  3. VELCADE [Suspect]
     Active Substance: BORTEZOMIB
     Indication: Plasma cell myeloma
     Dosage: AT LEAST THREE 6-WEEK CYCLES ACCORDING VMP PROTOCOL FOR MULTIPLE MYELOMA
     Route: 065
  4. RITUXIMAB [Suspect]
     Active Substance: RITUXIMAB
     Indication: Guillain-Barre syndrome
     Dosage: 100 MILLIGRAM
     Route: 065
  5. HUMAN IMMUNOGLOBULIN G [Suspect]
     Active Substance: HUMAN IMMUNOGLOBULIN G
     Indication: Guillain-Barre syndrome
     Dosage: 0.4 GRAM PER KILOGRAM, ONCE A DAY
     Route: 065

REACTIONS (7)
  - Pneumonia [Recovered/Resolved]
  - Deep vein thrombosis [Recovered/Resolved]
  - Toxicity to various agents [Recovered/Resolved]
  - Therapy partial responder [Recovered/Resolved]
  - Treatment failure [Recovered/Resolved]
  - Guillain-Barre syndrome [Unknown]
  - Drug ineffective [Unknown]
